FAERS Safety Report 10262177 (Version 1)
Quarter: 2014Q2

REPORT INFORMATION
  Report Type: Report from Study
  Country: TW (occurrence: TW)
  Receive Date: 20140626
  Receipt Date: 20140626
  Transmission Date: 20141212
  Serious: Yes (Death)
  Sender: FDA-Public Use
  Company Number: TW-ASTELLAS-2014JP012518

PATIENT
  Sex: 0

DRUGS (1)
  1. MICAFUNGIN [Suspect]
     Indication: SYSTEMIC CANDIDA
     Route: 042

REACTIONS (2)
  - Systemic candida [Fatal]
  - Drug ineffective [Unknown]
